FAERS Safety Report 15328259 (Version 1)
Quarter: 2018Q3

REPORT INFORMATION
  Report Type: Spontaneous
  Country: JP (occurrence: JP)
  Receive Date: 20180829
  Receipt Date: 20180829
  Transmission Date: 20181010
  Serious: Yes (Other)
  Sender: FDA-Public Use
  Company Number: JP-DENTSPLY-2018SCDP000377

PATIENT
  Sex: Male

DRUGS (16)
  1. LIDOCAINE HCL [Suspect]
     Active Substance: LIDOCAINE HYDROCHLORIDE
     Indication: ANDROGENETIC ALOPECIA
     Dosage: UNK
  2. MINOXIDIL. [Concomitant]
     Active Substance: MINOXIDIL
     Indication: ANDROGENETIC ALOPECIA
     Dosage: UNK, BID
     Route: 061
  3. PROPANEDIOL [Concomitant]
     Indication: ANDROGENETIC ALOPECIA
     Dosage: UNK, ONCE MONTHLY FOR MORE THAN SIX MONTHS
  4. SODIUM HYALURONATE [Concomitant]
     Active Substance: HYALURONATE SODIUM
     Indication: ANDROGENETIC ALOPECIA
     Dosage: UNK, ONCE MONTHLY FOR MORE THAN SIX MONTHS
  5. COPPER TRIPEPTIDE [Concomitant]
     Indication: ANDROGENETIC ALOPECIA
     Dosage: UNK, ONCE MONTHLY FOR MORE THAN SIX MONTHS
  6. PANTHENOL [Concomitant]
     Active Substance: PANTHENOL
     Indication: ANDROGENETIC ALOPECIA
     Dosage: UNK, ONCE MONTHLY FOR MORE THAN SIX MONTHS
  7. ARGININE [Concomitant]
     Active Substance: ARGININE
     Indication: ANDROGENETIC ALOPECIA
     Dosage: UNK, ONCE MONTHLY FOR MORE THAN SIX MONTHS
  8. LYSIN                              /00919902/ [Concomitant]
     Indication: ANDROGENETIC ALOPECIA
     Dosage: UNK, ONCE MONTHLY FOR MORE THAN SIX MONTHS
  9. PROPYLENE GLYCOL [Concomitant]
     Active Substance: PROPYLENE GLYCOL
     Indication: ANDROGENETIC ALOPECIA
     Dosage: UNK, ONCE MONTHLY FOR MORE THAN SIX MONTHS
  10. PYRIDOXINE [Concomitant]
     Active Substance: PYRIDOXINE
     Indication: ANDROGENETIC ALOPECIA
     Dosage: UNK, ONCE MONTHLY FOR MORE THAN SIX MONTHS
  11. ASPARTIC ACID [Concomitant]
     Active Substance: ASPARTIC ACID
     Indication: ANDROGENETIC ALOPECIA
     Dosage: UNK, ONCE MONTHLY FOR MORE THAN SIX MONTHS
  12. FINASTERIDE. [Concomitant]
     Active Substance: FINASTERIDE
     Indication: ANDROGENETIC ALOPECIA
     Dosage: ONCE DAILY
     Route: 048
  13. RETINYL PALMITATE [Concomitant]
     Indication: ANDROGENETIC ALOPECIA
     Dosage: UNK, ONCE MONTHLY FOR MORE THAN SIX MONTHS
  14. CAFFEINE. [Concomitant]
     Active Substance: CAFFEINE
     Indication: ANDROGENETIC ALOPECIA
     Dosage: UNK, ONCE MONTHLY FOR MORE THAN SIX MONTHS
  15. NIACIN. [Concomitant]
     Active Substance: NIACIN
     Indication: ANDROGENETIC ALOPECIA
     Dosage: UNK, ONCE MONTHLY FOR MORE THAN SIX MONTHS
  16. UBIQUINONE [Concomitant]
     Active Substance: UBIDECARENONE
     Indication: ANDROGENETIC ALOPECIA
     Dosage: UNK, ONCE MONTHLY FOR MORE THAN SIX MONTHS

REACTIONS (2)
  - Haemorrhage [Recovered/Resolved]
  - Pain [Recovered/Resolved]
